FAERS Safety Report 9812922 (Version 1)
Quarter: 2014Q1

REPORT INFORMATION
  Report Type: Spontaneous
  Country: US (occurrence: US)
  Receive Date: 20140113
  Receipt Date: 20140113
  Transmission Date: 20141002
  Serious: No
  Sender: FDA-Public Use
  Company Number: US-PFIZER INC-2014007451

PATIENT
  Age: 72 Year
  Sex: Male

DRUGS (1)
  1. ADVIL GELCAPS [Suspect]
     Dosage: UNK
     Route: 048
     Dates: start: 20140107

REACTIONS (2)
  - Pruritus generalised [Not Recovered/Not Resolved]
  - Scratch [Not Recovered/Not Resolved]
